FAERS Safety Report 24135535 (Version 3)
Quarter: 2024Q4

REPORT INFORMATION
  Report Type: Other
  Country: US (occurrence: US)
  Receive Date: 20240725
  Receipt Date: 20241129
  Transmission Date: 20250114
  Serious: Yes (Death)
  Sender: ALVOGEN
  Company Number: US-ALVOGEN-2024095167

PATIENT
  Age: 24 Year
  Sex: Male

DRUGS (5)
  1. GABAPENTIN [Suspect]
     Active Substance: GABAPENTIN
     Indication: Drug abuse
  2. FENTANYL [Suspect]
     Active Substance: FENTANYL
     Indication: Drug abuse
  3. HYDROXYZINE [Suspect]
     Active Substance: HYDROXYZINE HYDROCHLORIDE
     Indication: Drug abuse
  4. BUSPIRONE HYDROCHLORIDE [Suspect]
     Active Substance: BUSPIRONE HYDROCHLORIDE
     Indication: Drug abuse
  5. ESCITALOPRAM [Suspect]
     Active Substance: ESCITALOPRAM OXALATE
     Indication: Drug abuse

REACTIONS (6)
  - Toxicity to various agents [Fatal]
  - Pulmonary congestion [Fatal]
  - Acute pulmonary oedema [Fatal]
  - Accident [Fatal]
  - Overdose [Fatal]
  - Drug abuse [Fatal]
